FAERS Safety Report 13997265 (Version 2)
Quarter: 2017Q4

REPORT INFORMATION
  Report Type: Spontaneous
  Country: JP (occurrence: JP)
  Receive Date: 20170921
  Receipt Date: 20171108
  Transmission Date: 20180321
  Serious: Yes (Other)
  Sender: FDA-Public Use
  Company Number: JP-ELI_LILLY_AND_COMPANY-JP201705012477

PATIENT
  Age: 65 Year
  Sex: Male

DRUGS (7)
  1. DEXART [Suspect]
     Active Substance: DEXAMETHASONE SODIUM PHOSPHATE
     Dosage: UNK, WEEKLY (1/W)
     Route: 041
     Dates: start: 20170301
  2. GASTER [Concomitant]
     Active Substance: FAMOTIDINE
     Indication: TONGUE CANCER RECURRENT
     Dosage: 20 MG, WEEKLY (1/W)
     Route: 041
     Dates: start: 20151007
  3. ERBITUX [Suspect]
     Active Substance: CETUXIMAB
     Indication: TONGUE CANCER RECURRENT
     Dosage: 150 MG, WEEKLY (1/W)
     Route: 041
     Dates: start: 20151007, end: 20170308
  4. DEXART [Suspect]
     Active Substance: DEXAMETHASONE SODIUM PHOSPHATE
     Indication: PREMEDICATION
     Dosage: UNK, WEEKLY (1/W)
     Route: 041
     Dates: start: 20170125
  5. ERBITUX [Suspect]
     Active Substance: CETUXIMAB
     Dosage: 150 MG, WEEKLY (1/W)
     Route: 041
     Dates: end: 20170426
  6. POLARAMINE [Concomitant]
     Active Substance: DEXCHLORPHENIRAMINE MALEATE
     Indication: TONGUE CANCER RECURRENT
     Dosage: 5 MG, WEEKLY (1/W)
     Route: 041
     Dates: start: 20151007
  7. PACLITAXEL. [Concomitant]
     Active Substance: PACLITAXEL
     Indication: TONGUE CANCER RECURRENT
     Dosage: 100 MG, WEEKLY (1/W)
     Route: 041
     Dates: start: 20170125

REACTIONS (3)
  - Infusion related reaction [Recovered/Resolved]
  - Cytokine release syndrome [Recovered/Resolved]
  - Off label use [Unknown]

NARRATIVE: CASE EVENT DATE: 20170308
